FAERS Safety Report 13100957 (Version 1)
Quarter: 2017Q1

REPORT INFORMATION
  Report Type: Report from Study
  Country: PH (occurrence: PH)
  Receive Date: 20170110
  Receipt Date: 20170110
  Transmission Date: 20170428
  Serious: Yes (Other)
  Sender: FDA-Public Use
  Company Number: PHHY2017PH002184

PATIENT
  Sex: Female

DRUGS (1)
  1. GLIVEC [Suspect]
     Active Substance: IMATINIB MESYLATE
     Indication: CHRONIC MYELOID LEUKAEMIA
     Dosage: FETAL DRUG EXPOSURE VIA FATHER
     Route: 050

REACTIONS (2)
  - Abortion spontaneous [Unknown]
  - Exposure via father [Unknown]

NARRATIVE: CASE EVENT DATE: 20170103
